FAERS Safety Report 6248547-X (Version None)
Quarter: 2009Q2

REPORT INFORMATION
  Report Type: 
  Country: None (occurrence: None)
  Receive Date: 20090624
  Receipt Date: 20090624
  Transmission Date: 20091009
  Serious: No
  Sender: FDA-Public Use
  Company Number: None

PATIENT
  Age: 52 Year
  Sex: Male
  Weight: 92 kg

DRUGS (15)
  1. OXYCODONE HCL [Suspect]
     Dosage: 15MG PO Q4 PRN
     Route: 048
     Dates: start: 20090408, end: 20090410
  2. PERCOCET [Suspect]
     Dosage: 2 TAB PO Q4 PRN
     Route: 048
     Dates: start: 20090410
  3. AMLODIPINE [Concomitant]
  4. ASPIRIN [Concomitant]
  5. INSULIN [Concomitant]
  6. LASIX [Concomitant]
  7. LINEZOLID [Concomitant]
  8. LISINOPRIL [Concomitant]
  9. PREVACID [Concomitant]
  10. PREVACID [Concomitant]
  11. QUETIAPINE FUMARATE [Concomitant]
  12. SPIRONOLACTONE [Concomitant]
  13. VENLAFAXINE HYDROCHLORIDE [Concomitant]
  14. WARF [Concomitant]
  15. ALPRAZOLAM [Concomitant]

REACTIONS (2)
  - LETHARGY [None]
  - SOMNOLENCE [None]
